FAERS Safety Report 18942519 (Version 2)
Quarter: 2021Q1

REPORT INFORMATION
  Report Type: Spontaneous
  Country: PT (occurrence: PT)
  Receive Date: 20210225
  Receipt Date: 20210317
  Transmission Date: 20210420
  Serious: Yes (Other)
  Sender: FDA-Public Use
  Company Number: PT-GILEAD-2021-0518492

PATIENT
  Age: 87 Year
  Sex: Male
  Weight: 68 kg

DRUGS (11)
  1. VEKLURY [Suspect]
     Active Substance: REMDESIVIR
     Indication: COVID-19 PNEUMONIA
     Dosage: D1 ? 200 MG E DE D2?D5 100 MG
     Route: 042
     Dates: start: 20210122, end: 20210122
  2. VEKLURY [Suspect]
     Active Substance: REMDESIVIR
     Dosage: D2?D5 100 MG
     Route: 042
     Dates: start: 20210123, end: 20210126
  3. FUROSEMIDE. [Concomitant]
     Active Substance: FUROSEMIDE
  4. OMEPRAZOLE. [Concomitant]
     Active Substance: OMEPRAZOLE
  5. FOLIC ACID. [Concomitant]
     Active Substance: FOLIC ACID
  6. QUETIAPINE. [Concomitant]
     Active Substance: QUETIAPINE
  7. ENOXAPARIN SODIUM. [Concomitant]
     Active Substance: ENOXAPARIN SODIUM
  8. CYANOCOBALAMIN. [Concomitant]
     Active Substance: CYANOCOBALAMIN
  9. CAPTOPRIL. [Concomitant]
     Active Substance: CAPTOPRIL
  10. DEXAMETHASONE. [Concomitant]
     Active Substance: DEXAMETHASONE
  11. BISOPROLOL [Concomitant]
     Active Substance: BISOPROLOL

REACTIONS (1)
  - Renal impairment [Unknown]

NARRATIVE: CASE EVENT DATE: 20210125
